FAERS Safety Report 7145978-0 (Version None)
Quarter: 2010Q4

REPORT INFORMATION
  Report Type: 
  Country: None (occurrence: None)
  Receive Date: 20101208
  Receipt Date: 20101124
  Transmission Date: 20110411
  Serious: Yes (Hospitalization)
  Sender: FDA-Public Use
  Company Number: JP-CELGENEUS-087-21880-10111551

PATIENT
  Sex: Male
  Weight: 60 kg

DRUGS (3)
  1. REVLIMID [Suspect]
     Indication: MULTIPLE MYELOMA
     Route: 048
     Dates: start: 20101021, end: 20101110
  2. REVLIMID [Suspect]
     Route: 048
     Dates: start: 20101118, end: 20101124
  3. LENADEX [Suspect]
     Indication: MULTIPLE MYELOMA
     Route: 048
     Dates: start: 20101021, end: 20101024

REACTIONS (13)
  - C-REACTIVE PROTEIN INCREASED [None]
  - DIARRHOEA [None]
  - DIZZINESS [None]
  - GASTROINTESTINAL PERFORATION [None]
  - HEPATIC FUNCTION ABNORMAL [None]
  - MALAISE [None]
  - NAUSEA [None]
  - NEUTROPHIL COUNT DECREASED [None]
  - PERITONITIS [None]
  - PYREXIA [None]
  - RASH [None]
  - SEPSIS [None]
  - STOMATITIS [None]
